FAERS Safety Report 4346838-0 (Version None)
Quarter: 2004Q2

REPORT INFORMATION
  Report Type: 
  Country: None (occurrence: None)
  Receive Date: 20040426
  Receipt Date: 20040401
  Transmission Date: 20050107
  Serious: Yes (Hospitalization, Other)
  Sender: FDA-Public Use
  Company Number: PHEH2004US03836

PATIENT
  Age: 55 Year
  Sex: Male
  Weight: 97 kg

DRUGS (10)
  1. ZOMETA [Suspect]
     Indication: MULTIPLE MYELOMA
     Dosage: 4 MG, QMO
     Route: 042
     Dates: start: 20020225, end: 20040120
  2. PREDNISONE [Concomitant]
     Dosage: 5 MG, QD
     Route: 048
  3. ARANESP [Concomitant]
     Dosage: 300 UNK, UNK
     Dates: end: 20040120
  4. ZYPREXA [Concomitant]
     Dosage: 5 MG, QHS
  5. TESTOSTERONE [Concomitant]
     Dosage: 5 MG, UNK
     Route: 062
  6. VITAMIN CAP [Concomitant]
  7. PERI-COLACE [Concomitant]
     Dosage: 4 UNK, QD
  8. METHADONE [Concomitant]
     Dosage: 2.5 MG, BID
  9. CATAPRES-TTS-1 [Concomitant]
     Dosage: UNK, QW
  10. DARVOCET-N 100 [Concomitant]
     Dosage: 100 UNK, PRN

REACTIONS (5)
  - BLOOD CALCIUM INCREASED [None]
  - BLOOD CREATININE INCREASED [None]
  - GINGIVAL DISORDER [None]
  - HIP ARTHROPLASTY [None]
  - OSTEONECROSIS [None]
